FAERS Safety Report 7329411-1 (Version None)
Quarter: 2011Q1

REPORT INFORMATION
  Report Type: 
  Country: None (occurrence: None)
  Receive Date: 20110225
  Receipt Date: 20110225
  Transmission Date: 20110831
  Serious: Yes (Other)
  Sender: FDA-Public Use
  Company Number: None

PATIENT
  Age: 50 Year
  Sex: Female
  Weight: 106.5953 kg

DRUGS (1)
  1. LYRICA [Suspect]
     Indication: FIBROMYALGIA
     Dates: start: 20110201, end: 20110225

REACTIONS (15)
  - THINKING ABNORMAL [None]
  - BACK PAIN [None]
  - MENTAL DISORDER [None]
  - MYALGIA [None]
  - PAIN [None]
  - HYPERPHAGIA [None]
  - ANXIETY [None]
  - HUNGER [None]
  - NECK PAIN [None]
  - SINUS HEADACHE [None]
  - CONFUSIONAL STATE [None]
  - FATIGUE [None]
  - THERAPY CESSATION [None]
  - FEELING ABNORMAL [None]
  - HEADACHE [None]
